FAERS Safety Report 20950737 (Version 2)
Quarter: 2022Q3

REPORT INFORMATION
  Report Type: Report from Study
  Country: CZ (occurrence: CZ)
  Receive Date: 20220613
  Receipt Date: 20220903
  Transmission Date: 20221026
  Serious: Yes (Hospitalization)
  Sender: FDA-Public Use
  Company Number: CZ-ABBVIE-22K-217-4428345-00

PATIENT
  Age: 39 Year
  Sex: Male

DRUGS (6)
  1. SKYRIZI [Suspect]
     Active Substance: RISANKIZUMAB-RZAA
     Indication: Psoriasis
     Dosage: HIGHEST MAINTENANCE DOSE: 150 MG  PER ONE MONTHS
     Route: 058
     Dates: start: 20210209, end: 20210309
  2. SKYRIZI [Suspect]
     Active Substance: RISANKIZUMAB-RZAA
     Dosage: HIGHEST MAINTENANCE DOSE 150 MG PER THREE MONTHS
     Route: 058
     Dates: start: 20210310
  3. DESLORATADINUM [Concomitant]
     Indication: Asthma
     Route: 048
     Dates: start: 202103
  4. ERDOSTEINUM [Concomitant]
     Indication: Asthma
     Route: 048
     Dates: start: 202103, end: 202103
  5. BECLOMETHASONE DIPROPIONATE\FORMOTEROL FUMARATE [Concomitant]
     Active Substance: BECLOMETHASONE DIPROPIONATE\FORMOTEROL FUMARATE
     Indication: Asthma
     Route: 055
     Dates: start: 202103
  6. NADROPARIN CALCIUM [Concomitant]
     Active Substance: NADROPARIN CALCIUM
     Indication: Thrombosis prophylaxis
     Dosage: EVERY 24 HOURS
     Route: 058
     Dates: start: 20220527

REACTIONS (2)
  - Tibia fracture [Recovering/Resolving]
  - Fibula fracture [Recovering/Resolving]

NARRATIVE: CASE EVENT DATE: 20220527
